FAERS Safety Report 16940099 (Version 1)
Quarter: 2019Q4

REPORT INFORMATION
  Report Type: Spontaneous
  Country: US (occurrence: US)
  Receive Date: 20191021
  Receipt Date: 20191021
  Transmission Date: 20200122
  Serious: No
  Sender: FDA-Public Use
  Company Number: US-NEUROCRINE BIOSCIENCES INC.-2019NBI03015

PATIENT
  Age: 5 Decade
  Sex: Male

DRUGS (2)
  1. INGREZZA [Suspect]
     Active Substance: VALBENAZINE
     Indication: TARDIVE DYSKINESIA
     Dates: start: 2019, end: 2019
  2. INGREZZA [Suspect]
     Active Substance: VALBENAZINE
     Dates: start: 2019, end: 20191008

REACTIONS (4)
  - Tremor [Unknown]
  - Weight decreased [Unknown]
  - Mental status changes [Unknown]
  - Akathisia [Unknown]

NARRATIVE: CASE EVENT DATE: 2019
